FAERS Safety Report 14304709 (Version 1)
Quarter: 2017Q4

REPORT INFORMATION
  Report Type: Spontaneous
  Country: US (occurrence: US)
  Receive Date: 20171219
  Receipt Date: 20171219
  Transmission Date: 20180321
  Serious: Yes (Other)
  Sender: FDA-Public Use
  Company Number: US-OTSUKA-16270134

PATIENT
  Sex: Male

DRUGS (1)
  1. ABILIFY [Suspect]
     Active Substance: ARIPIPRAZOLE
     Indication: PSYCHOTIC DISORDER
     Dosage: UNK
     Route: 065
     Dates: start: 20111118

REACTIONS (6)
  - Paranoia [Unknown]
  - Suicidal ideation [Unknown]
  - Dizziness [Unknown]
  - Depressed mood [Unknown]
  - Anger [Unknown]
  - Irritability [Unknown]
